FAERS Safety Report 9884164 (Version 2)
Quarter: 2014Q1

REPORT INFORMATION
  Report Type: Spontaneous
  Country: US (occurrence: US)
  Receive Date: 20140210
  Receipt Date: 20140210
  Transmission Date: 20141002
  Serious: No
  Sender: FDA-Public Use
  Company Number: US-ALLERGAN-1315616US

PATIENT
  Age: 36 Year
  Sex: Female

DRUGS (8)
  1. BOTOX COSMETIC [Suspect]
     Indication: SKIN WRINKLING
     Dosage: 10 UNITS, SINGLE
     Route: 030
     Dates: start: 20130925, end: 20130925
  2. BOTOX COSMETIC [Suspect]
     Indication: SKIN WRINKLING
     Dosage: 4 UNITS, SINGLE
     Route: 030
     Dates: start: 20130925, end: 20130925
  3. BOTOX COSMETIC [Suspect]
     Indication: SKIN WRINKLING
     Dosage: 2 UNITS, SINGLE
     Route: 030
     Dates: start: 20130925, end: 20130925
  4. RITALIN [Suspect]
     Indication: PRODUCT USED FOR UNKNOWN INDICATION
     Dosage: UNK UNK, QD
     Route: 048
     Dates: start: 20130916, end: 20131001
  5. GABAPENTIN [Concomitant]
     Indication: RESTLESS LEGS SYNDROME
     Dosage: UNK UNK, QHS
     Route: 048
     Dates: start: 201305
  6. DOXYCYCLINE [Concomitant]
     Indication: ACNE
     Dosage: UNK UNK, QD
     Route: 048
     Dates: start: 20130923, end: 20130929
  7. ORACEA [Concomitant]
     Indication: ROSACEA
     Dosage: UNK
     Dates: start: 20130923, end: 20130929
  8. ORACEA [Concomitant]
     Indication: ACNE

REACTIONS (2)
  - Fatigue [Not Recovered/Not Resolved]
  - Eye pruritus [Recovered/Resolved]
